FAERS Safety Report 4648889-5 (Version None)
Quarter: 2005Q2

REPORT INFORMATION
  Report Type: 
  Country: None (occurrence: None)
  Receive Date: 20050429
  Receipt Date: 20050316
  Transmission Date: 20051028
  Serious: No
  Sender: FDA-Public Use
  Company Number: JP-MERCK-0503USA03111

PATIENT
  Age: 39 Day
  Sex: Female
  Weight: 1 kg

DRUGS (13)
  1. DECADRON [Suspect]
     Indication: PATENT DUCTUS ARTERIOSUS
     Route: 041
     Dates: start: 20030723, end: 20030725
  2. DECADRON [Suspect]
     Route: 041
     Dates: start: 20030726, end: 20030728
  3. DECADRON [Suspect]
     Route: 041
     Dates: start: 20030729, end: 20030731
  4. DECADRON [Suspect]
     Route: 041
  5. DECADRON [Suspect]
     Route: 041
  6. DECADRON [Suspect]
     Route: 041
  7. INDOCIN [Suspect]
     Indication: PATENT DUCTUS ARTERIOSUS
     Route: 042
     Dates: start: 20030728, end: 20030729
  8. INDOCIN [Suspect]
     Route: 042
     Dates: start: 20030730, end: 20030730
  9. INDOCIN [Suspect]
     Route: 041
  10. INDOCIN [Suspect]
     Route: 041
  11. INDOCIN [Suspect]
     Route: 041
  12. INDOCIN [Suspect]
     Route: 041
  13. INDOCIN [Suspect]
     Route: 042
     Dates: start: 20030724, end: 20030725

REACTIONS (1)
  - HYPERTENSION [None]
